FAERS Safety Report 25037015 (Version 1)
Quarter: 2025Q1

REPORT INFORMATION
  Report Type: Spontaneous
  Country: CA (occurrence: CA)
  Receive Date: 20250304
  Receipt Date: 20250304
  Transmission Date: 20250408
  Serious: Yes (Hospitalization, Other)
  Sender: SANDOZ
  Company Number: CA-002147023-NVSC2023CA134503

PATIENT
  Age: 28 Year
  Sex: Female

DRUGS (14)
  1. AMOXICILLIN TRIHYDRATE [Suspect]
     Active Substance: AMOXICILLIN
     Indication: Preterm premature rupture of membranes
     Dosage: 250.0 MG, Q8H
     Route: 048
  2. AMPICILLIN [Suspect]
     Active Substance: AMPICILLIN
     Indication: Preterm premature rupture of membranes
     Dosage: 2 G, Q6H
     Route: 065
  3. AMPICILLIN [Suspect]
     Active Substance: AMPICILLIN
     Dosage: 2 G, QID
     Route: 042
  4. BETAMETHASONE [Suspect]
     Active Substance: BETAMETHASONE
     Indication: Maternal therapy to enhance foetal lung maturity
     Dosage: 12.0 MG, Q24H
     Route: 030
  5. BETAMETHASONE [Suspect]
     Active Substance: BETAMETHASONE
     Indication: Preterm premature rupture of membranes
  6. CEFTRIAXONE [Suspect]
     Active Substance: CEFTRIAXONE
     Indication: Escherichia infection
     Dosage: 2 G, QD
     Route: 065
  7. CEFTRIAXONE [Suspect]
     Active Substance: CEFTRIAXONE
     Indication: Amniotic cavity infection
  8. ERYTHROMYCIN [Suspect]
     Active Substance: ERYTHROMYCIN
     Indication: Preterm premature rupture of membranes
     Dosage: 333.0 MG, Q8H
     Route: 065
  9. ERYTHROMYCIN [Suspect]
     Active Substance: ERYTHROMYCIN
     Dosage: 500 MG, QID
     Route: 042
  10. OXYTOCIN [Suspect]
     Active Substance: OXYTOCIN
     Indication: Labour augmentation
     Route: 065
  11. PIPERACILLIN AND TAZOBACTAM [Suspect]
     Active Substance: PIPERACILLIN SODIUM\TAZOBACTAM SODIUM
     Indication: Escherichia infection
     Route: 065
  12. PIPERACILLIN AND TAZOBACTAM [Suspect]
     Active Substance: PIPERACILLIN SODIUM\TAZOBACTAM SODIUM
     Indication: Amniotic cavity infection
  13. GENTAMICIN [Concomitant]
     Active Substance: GENTAMICIN
     Indication: Amniotic cavity infection
     Dosage: 340 MG/KG, QD
     Route: 065
  14. GENTAMICIN [Concomitant]
     Active Substance: GENTAMICIN
     Indication: Escherichia infection
     Dosage: 5 MG/KG, Q24H
     Route: 065

REACTIONS (3)
  - Foetal death [Unknown]
  - Maternal exposure during pregnancy [Unknown]
  - Drug ineffective [Unknown]
